FAERS Safety Report 6044483-2 (Version None)
Quarter: 2009Q1

REPORT INFORMATION
  Report Type: 
  Country: None (occurrence: None)
  Receive Date: 20090114
  Receipt Date: 20090114
  Transmission Date: 20090719
  Serious: No
  Sender: FDA-Public Use
  Company Number: None

PATIENT
  Age: 74 Year
  Sex: Female
  Weight: 61.2356 kg

DRUGS (3)
  1. PRAVACHOL [Suspect]
     Indication: BLOOD CHOLESTEROL INCREASED
     Dosage: ONCE A DAY
  2. ZETIA [Suspect]
     Indication: HYPERTENSION
     Dosage: ONCE A DAY
  3. BENICAR [Suspect]
     Indication: HYPERTENSION
     Dosage: ONCE A DAY

REACTIONS (1)
  - HAIR COLOUR CHANGES [None]
